FAERS Safety Report 19234525 (Version 10)
Quarter: 2023Q2

REPORT INFORMATION
  Report Type: Report from Study
  Country: US (occurrence: US)
  Receive Date: 20210508
  Receipt Date: 20230406
  Transmission Date: 20230721
  Serious: Yes (Hospitalization, Other)
  Sender: FDA-Public Use
  Company Number: US-TAKEDA-US201928447

PATIENT
  Sex: Female

DRUGS (1)
  1. HUMAN IMMUNOGLOBULIN G [Suspect]
     Active Substance: HUMAN IMMUNOGLOBULIN G
     Indication: Primary immunodeficiency syndrome
     Dosage: UNK
     Route: 042

REACTIONS (18)
  - Bacterial infection [Unknown]
  - COVID-19 [Unknown]
  - Leukaemia [Unknown]
  - Respiratory syncytial virus infection [Unknown]
  - Hip fracture [Unknown]
  - Fatigue [Unknown]
  - Fall [Unknown]
  - Immunoglobulins decreased [Unknown]
  - Bladder disorder [Unknown]
  - Poor venous access [Unknown]
  - Toothache [Unknown]
  - Fluid retention [Unknown]
  - Contusion [Unknown]
  - Infusion site bruising [Unknown]
  - Abdominal pain upper [Unknown]
  - Back pain [Unknown]
  - Muscle spasms [Not Recovered/Not Resolved]
  - Inappropriate schedule of product administration [Unknown]
